FAERS Safety Report 9267632 (Version 1)
Quarter: 2013Q2

REPORT INFORMATION
  Report Type: Spontaneous
  Country: US (occurrence: US)
  Receive Date: 20130502
  Receipt Date: 20130502
  Transmission Date: 20140414
  Serious: No
  Sender: FDA-Public Use
  Company Number: US-009507513-1304USA014772

PATIENT
  Age: 3 Year
  Sex: Female
  Weight: 16.33 kg

DRUGS (1)
  1. CLARITIN ORAL SOLUTION [Suspect]
     Indication: PRURITUS
     Dosage: 15 MG, ONCE
     Route: 048
     Dates: start: 20130408

REACTIONS (2)
  - Accidental overdose [Not Recovered/Not Resolved]
  - Accidental exposure to product by child [Not Recovered/Not Resolved]
